FAERS Safety Report 5300828-X (Version None)
Quarter: 2007Q1

REPORT INFORMATION
  Report Type: 
  Country: None (occurrence: None)
  Receive Date: 20070201
  Receipt Date: 20061201
  Transmission Date: 20070707
  Serious: No
  Sender: FDA-Public Use
  Company Number: 2006PV026176

PATIENT
  Age: 68 Year
  Sex: Male
  Weight: 120.6568 kg

DRUGS (1)
  1. BYETTA [Suspect]
     Indication: DIABETES PROPHYLAXIS
     Dosage: 5 MCG; BID; SC
     Route: 058
     Dates: start: 20061127

REACTIONS (2)
  - NAUSEA [None]
  - WEIGHT DECREASED [None]
